FAERS Safety Report 6102982-9 (Version None)
Quarter: 2009Q1

REPORT INFORMATION
  Report Type: 
  Country: None (occurrence: None)
  Receive Date: 20090305
  Receipt Date: 20090223
  Transmission Date: 20090719
  Serious: Yes (Other)
  Sender: FDA-Public Use
  Company Number: PHHY2009CH06426

PATIENT
  Age: 77 Year
  Sex: Female

DRUGS (9)
  1. GLEEVEC [Suspect]
     Indication: CHRONIC MYELOID LEUKAEMIA
     Dosage: UNK
  2. SINTROM [Suspect]
  3. MIACALCIN [Suspect]
  4. FOSAMAX [Concomitant]
  5. NEXIUM [Concomitant]
  6. PREDNISONE [Concomitant]
  7. MOTILIUM [Concomitant]
  8. CALCIMAGON [Concomitant]
  9. NOVALGIN [Concomitant]

REACTIONS (2)
  - MUSCLE ATROPHY [None]
  - MYALGIA [None]
